FAERS Safety Report 6371172-7 (Version None)
Quarter: 2009Q3

REPORT INFORMATION
  Report Type: 
  Country: None (occurrence: None)
  Receive Date: 20090923
  Receipt Date: 20070724
  Transmission Date: 20100115
  Serious: Yes (Other)
  Sender: FDA-Public Use
  Company Number: US-ASTRAZENECA-2007UW02002

PATIENT
  Age: 496 Month
  Sex: Male
  Weight: 105.2 kg

DRUGS (14)
  1. SEROQUEL [Suspect]
     Indication: BIPOLAR DISORDER
     Dosage: UP TO 400 MG
     Route: 048
     Dates: start: 20020101, end: 20040201
  2. SEROQUEL [Suspect]
     Indication: DEPRESSION
     Dosage: UP TO 400 MG
     Route: 048
     Dates: start: 20020101, end: 20040201
  3. SEROQUEL [Suspect]
     Dosage: 100-300 MG
     Route: 048
     Dates: start: 20030117
  4. SEROQUEL [Suspect]
     Dosage: 100-300 MG
     Route: 048
     Dates: start: 20030117
  5. THORAZINE [Concomitant]
     Dates: start: 20020601, end: 20020901
  6. ZYPREXA/SYMBYAX [Concomitant]
     Dosage: 5-15 MG
     Route: 048
     Dates: start: 20021106
  7. LITHIUM [Concomitant]
     Dates: start: 20020101, end: 20030101
  8. MELLARIL [Concomitant]
  9. TEGRETOL [Concomitant]
     Dosage: 100-300 MG
     Dates: start: 20030801
  10. LIPITOR [Concomitant]
     Dosage: 20-40 MG
     Dates: start: 20040701
  11. CHLORPROMAZINE [Concomitant]
     Route: 048
     Dates: start: 20020925
  12. NIACIN [Concomitant]
     Dosage: 500-1000 MG
     Route: 048
     Dates: start: 20030917
  13. ZOCOR [Concomitant]
     Dosage: 20-40 MG
     Route: 048
     Dates: start: 20040217
  14. PAXIL [Concomitant]
     Dosage: 40-60 MG
     Route: 048
     Dates: start: 20010905

REACTIONS (4)
  - CONVULSION [None]
  - DIABETES MELLITUS [None]
  - HYPERGLYCAEMIA [None]
  - TYPE 2 DIABETES MELLITUS [None]
